FAERS Safety Report 8103749-2 (Version None)
Quarter: 2012Q1

REPORT INFORMATION
  Report Type: 
  Country: None (occurrence: None)
  Receive Date: 20120201
  Receipt Date: 20120127
  Transmission Date: 20120608
  Serious: Yes (Hospitalization)
  Sender: FDA-Public Use
  Company Number: US-B.I. PHARMACEUTICALS,INC./RIDGEFIELD-2012-BP-01694BP

PATIENT
  Sex: Female

DRUGS (6)
  1. DIAZEPAM [Concomitant]
     Indication: PANIC ATTACK
  2. INDERAL [Concomitant]
     Indication: MIGRAINE
  3. SIMVASTATIN [Concomitant]
     Indication: BLOOD CHOLESTEROL INCREASED
  4. PRADAXA [Suspect]
     Indication: HEART DISEASE CONGENITAL
     Dates: start: 20110601
  5. INDERAL [Concomitant]
     Indication: NERVOUS SYSTEM DISORDER
  6. TRIAMTERENE AND HYDROCHLOROTHIAZIDE [Concomitant]
     Indication: HYPERTENSION

REACTIONS (4)
  - CARDIAC DISORDER [None]
  - MIGRAINE [None]
  - ABDOMINAL DISCOMFORT [None]
  - CONDITION AGGRAVATED [None]
